FAERS Safety Report 4354488-5 (Version None)
Quarter: 2004Q2

REPORT INFORMATION
  Report Type: 
  Country: None (occurrence: None)
  Receive Date: 20040503
  Receipt Date: 20040421
  Transmission Date: 20050107
  Serious: Yes (Death)
  Sender: FDA-Public Use
  Company Number: US-JNJUFOC-20040304728

PATIENT
  Age: 91 Year
  Sex: Female
  Weight: 73.9363 kg

DRUGS (4)
  1. DURAGESIC [Suspect]
     Indication: PAIN
     Dosage: TRANSDERMAL
     Route: 062
  2. CARDIZEM (DILTIZEM HYDROCHLORIDE) [Concomitant]
  3. LASIX [Concomitant]
  4. NPH INSULIN [Concomitant]

REACTIONS (8)
  - ARTERIOSCLEROSIS [None]
  - BLOOD BICARBONATE INCREASED [None]
  - BLOOD CALCIUM INCREASED [None]
  - BLOOD CREATININE INCREASED [None]
  - BLOOD GLUCOSE INCREASED [None]
  - BLOOD UREA INCREASED [None]
  - DIABETES MELLITUS [None]
  - GLYCOSYLATED HAEMOGLOBIN INCREASED [None]
